FAERS Safety Report 25485580 (Version 1)
Quarter: 2025Q2

REPORT INFORMATION
  Report Type: Spontaneous
  Country: CA (occurrence: CA)
  Receive Date: 20250626
  Receipt Date: 20250626
  Transmission Date: 20250716
  Serious: Yes (Death, Hospitalization, Other)
  Sender: PURDUE
  Company Number: CA-PURDUE-USA-2025-0318476

PATIENT
  Age: 71 Year
  Sex: Male

DRUGS (4)
  1. MORPHINE SULFATE [Suspect]
     Active Substance: MORPHINE SULFATE
     Indication: Product used for unknown indication
     Route: 065
  2. ELIGARD [Suspect]
     Active Substance: LEUPROLIDE ACETATE
     Indication: Prostate cancer
     Route: 058
  3. ELIGARD [Suspect]
     Active Substance: LEUPROLIDE ACETATE
     Route: 058
  4. XTANDI [Suspect]
     Active Substance: ENZALUTAMIDE
     Indication: Product used for unknown indication
     Route: 065

REACTIONS (30)
  - Arthralgia [Fatal]
  - Asthenia [Fatal]
  - Cellulitis [Fatal]
  - Chest discomfort [Fatal]
  - Chest pain [Fatal]
  - Constipation [Fatal]
  - Cough [Fatal]
  - Decreased appetite [Fatal]
  - Dyspnoea [Fatal]
  - Fall [Fatal]
  - Fatigue [Fatal]
  - Fracture infection [Fatal]
  - Gait disturbance [Fatal]
  - Headache [Fatal]
  - Hot flush [Fatal]
  - Hyperhidrosis [Fatal]
  - Hypoaesthesia [Fatal]
  - Injection site discomfort [Fatal]
  - Injection site mass [Fatal]
  - Injection site pain [Fatal]
  - Loss of consciousness [Fatal]
  - Lower limb fracture [Fatal]
  - Metastases to spine [Fatal]
  - Pain [Fatal]
  - Peripheral swelling [Fatal]
  - Prostate cancer metastatic [Fatal]
  - Prostatic specific antigen increased [Fatal]
  - Urinary tract infection [Fatal]
  - Weight decreased [Fatal]
  - Abdominal pain [Fatal]
